FAERS Safety Report 18871313 (Version 1)
Quarter: 2021Q1

REPORT INFORMATION
  Report Type: Spontaneous
  Country: US (occurrence: US)
  Receive Date: 20210209
  Receipt Date: 20210209
  Transmission Date: 20210420
  Serious: No
  Sender: FDA-Public Use
  Company Number: None

PATIENT
  Age: 85 Year
  Sex: Female
  Weight: 75 kg

DRUGS (16)
  1. REMDESIVIR. [Suspect]
     Active Substance: REMDESIVIR
     Indication: COVID-19
     Dosage: ?          OTHER FREQUENCY:200MG X1, 100MG/D;?
     Route: 042
     Dates: start: 20201115, end: 20201119
  2. BENZONATATE 100MG PO Q8H [Concomitant]
     Dates: start: 20201115, end: 20201129
  3. AMIODARONE 150MG IV BOLUS [Concomitant]
     Dates: start: 20201117, end: 20201117
  4. CARVEDILOL 12.5MG PO BID [Concomitant]
     Dates: start: 20201115, end: 20201120
  5. CEFTRIAXONE 1G IV DAILY [Concomitant]
     Dates: start: 20201115, end: 20201122
  6. ZINC SULFATE 220MG PO DAILY [Concomitant]
     Dates: start: 20201116, end: 20201129
  7. ALPRAZOLAM 0.25MG PO TID PRN ANXIETY/SLEEP [Concomitant]
     Dates: start: 20201117, end: 20201129
  8. AMIODARONE 200MG PO Q12H [Concomitant]
     Dates: start: 20201119, end: 20201129
  9. APIXABAN 2.5MG PO BID [Concomitant]
     Dates: start: 20201115, end: 20201129
  10. NYSTATIN ORAL SUSP 5ML PO 4X/D [Concomitant]
     Dates: start: 20201124, end: 20201129
  11. VITAMIN C 1000MG PO DAILY [Concomitant]
     Dates: start: 20201116, end: 20201129
  12. AZITHROMYCIN 500MG IV DAILY [Concomitant]
     Dates: start: 20201115, end: 20201119
  13. MELATONIN 6MG PO DAILY [Concomitant]
     Dates: start: 20201115, end: 20201129
  14. DEXAMETHASONE 6MG IV DAILY [Concomitant]
     Dates: start: 20201115, end: 20201125
  15. CARDIZEM CD 120MG PO DAILY [Concomitant]
     Dates: start: 20201115, end: 20201129
  16. FUROSEMIDE 20MG IV DAILY [Concomitant]
     Dates: start: 20201124, end: 20201125

REACTIONS (7)
  - Fatigue [None]
  - Lymphadenopathy [None]
  - Chronic lymphocytic leukaemia [None]
  - Dizziness [None]
  - Haemoglobin decreased [None]
  - Atrial fibrillation [None]
  - Blood pressure increased [None]

NARRATIVE: CASE EVENT DATE: 20201116
